FAERS Safety Report 6157586-9 (Version None)
Quarter: 2009Q2

REPORT INFORMATION
  Report Type: 
  Country: None (occurrence: None)
  Receive Date: 20090416
  Receipt Date: 20090406
  Transmission Date: 20091009
  Serious: No
  Sender: FDA-Public Use
  Company Number: US-WATSON-2009-01818

PATIENT
  Sex: Female
  Weight: 90.1 kg

DRUGS (2)
  1. FERRLECIT [Suspect]
     Indication: IRON DEFICIENCY ANAEMIA
     Dosage: 250MG/20 ML IN NACL 0.9% 250 ML, OVER 1 HOUR
     Route: 042
     Dates: start: 20090320, end: 20090320
  2. FERRLECIT [Suspect]
     Dosage: 25 MG, TEST DOSE
     Route: 042

REACTIONS (5)
  - BURNING SENSATION [None]
  - CHEST PAIN [None]
  - DYSPNOEA [None]
  - NAUSEA [None]
  - VOMITING [None]
